FAERS Safety Report 12666005 (Version 1)
Quarter: 2016Q3

REPORT INFORMATION
  Report Type: Spontaneous
  Country: US (occurrence: US)
  Receive Date: 20160818
  Receipt Date: 20160818
  Transmission Date: 20161109
  Serious: No
  Sender: FDA-Public Use
  Company Number: US-009507513-1607USA010896

PATIENT
  Sex: Male

DRUGS (2)
  1. TEMOZOLOMIDE. [Suspect]
     Active Substance: TEMOZOLOMIDE
     Route: 048
  2. TEMODAR [Suspect]
     Active Substance: TEMOZOLOMIDE
     Route: 048

REACTIONS (6)
  - Retching [Unknown]
  - Nausea [Unknown]
  - Product taste abnormal [Unknown]
  - Product quality issue [Unknown]
  - Product packaging issue [Unknown]
  - Feeling abnormal [Unknown]
